FAERS Safety Report 25996771 (Version 1)
Quarter: 2025Q4

REPORT INFORMATION
  Report Type: Spontaneous
  Country: US (occurrence: None)
  Receive Date: 20251104
  Receipt Date: 20251104
  Transmission Date: 20260117
  Serious: Yes (Other)
  Sender: AMERICAN REGENT
  Company Number: US-AMERICAN REGENT INC-2025003931

PATIENT
  Age: 75 Year
  Sex: Male

DRUGS (2)
  1. LIDOCAINE HYDROCHLORIDE [Suspect]
     Active Substance: LIDOCAINE HYDROCHLORIDE
     Indication: Anaesthesia eye
     Dosage: 0.07 MILLILITER IN RIGHT EYE OD THROUGH THE PARS PLANA
  2. AFLIBERCEPT [Concomitant]
     Active Substance: AFLIBERCEPT
     Indication: Neovascular age-related macular degeneration
     Dosage: UNK, EVERY 5 WEEKS IN BOTH EYES

REACTIONS (5)
  - Visual acuity reduced transiently [Recovered/Resolved]
  - Intraocular pressure increased [Recovered/Resolved]
  - Retinogram abnormal [Recovered/Resolved]
  - Incorrect route of product administration [Recovered/Resolved]
  - Medication error [Recovered/Resolved]
